FAERS Safety Report 14595455 (Version 3)
Quarter: 2023Q2

REPORT INFORMATION
  Report Type: Spontaneous
  Country: US (occurrence: US)
  Receive Date: 20180302
  Receipt Date: 20230630
  Transmission Date: 20230721
  Serious: No
  Sender: FDA-Public Use
  Company Number: US-JNJFOC-20180227375

PATIENT
  Age: 11 Year
  Sex: Male

DRUGS (7)
  1. RISPERDAL [Suspect]
     Active Substance: RISPERIDONE
     Indication: Autism spectrum disorder
     Dosage: VARYING DOSES AND FREQUENCIES OF 1 MG/ML, 1 ML TWICE DAILY, 1 MG THRICE DAILY
     Route: 048
     Dates: start: 20080122, end: 20110823
  2. RISPERDAL [Suspect]
     Active Substance: RISPERIDONE
     Dosage: IN VARYING DOSES AND FREQUENCIES OF 2 MG AT 8 PM, 1 MG IN THE MORNING AND 2 MG IN THE AFTERNOON
     Route: 048
  3. RISPERDAL [Suspect]
     Active Substance: RISPERIDONE
     Dosage: 1 MG/ML
     Route: 048
     Dates: start: 20131204, end: 20140207
  4. RISPERDAL [Suspect]
     Active Substance: RISPERIDONE
     Indication: Autism spectrum disorder
     Route: 048
     Dates: start: 20070705
  5. RISPERDAL [Suspect]
     Active Substance: RISPERIDONE
     Dosage: 0.5 MG, 01 TABLET AT 8 AM AND 02 TABLET AT 8 PM
     Route: 048
     Dates: start: 20070811, end: 20080107
  6. RISPERDAL [Suspect]
     Active Substance: RISPERIDONE
     Indication: Autism spectrum disorder
     Dosage: 1 MG/ML
     Route: 048
     Dates: start: 20110917, end: 20121103
  7. RISPERDAL [Suspect]
     Active Substance: RISPERIDONE

REACTIONS (5)
  - Emotional distress [Unknown]
  - Blood prolactin increased [Recovered/Resolved]
  - Gynaecomastia [Unknown]
  - Drug ineffective [Unknown]
  - Off label use [Unknown]

NARRATIVE: CASE EVENT DATE: 20090701
